FAERS Safety Report 14901290 (Version 1)
Quarter: 2018Q2

REPORT INFORMATION
  Report Type: Spontaneous
  Country: US (occurrence: US)
  Receive Date: 20180516
  Receipt Date: 20180516
  Transmission Date: 20180711
  Serious: Yes (Other)
  Sender: FDA-Public Use
  Company Number: US-SA-2018SA136660

PATIENT
  Sex: Female

DRUGS (3)
  1. SOLOSTAR [Suspect]
     Active Substance: DEVICE
  2. METFORMIN [Concomitant]
     Active Substance: METFORMIN HYDROCHLORIDE
     Route: 065
  3. LANTUS SOLOSTAR [Suspect]
     Active Substance: INSULIN GLARGINE
     Route: 051
     Dates: start: 2016, end: 201802

REACTIONS (1)
  - Eye operation [Unknown]
